FAERS Safety Report 21446370 (Version 1)
Quarter: 2022Q4

REPORT INFORMATION
  Report Type: Spontaneous
  Country: US (occurrence: US)
  Receive Date: 20221012
  Receipt Date: 20221012
  Transmission Date: 20230113
  Serious: No
  Sender: FDA-Public Use
  Company Number: US-SA-SAC20221012000433

PATIENT
  Sex: Male

DRUGS (14)
  1. DUPIXENT [Suspect]
     Active Substance: DUPILUMAB
     Indication: Dermatitis atopic
     Dosage: 300 MG, QOW
     Route: 058
  2. CALCIUM [Concomitant]
     Active Substance: CALCIUM
     Dosage: UNK
  3. DIGOXIN [Concomitant]
     Active Substance: DIGOXIN
     Dosage: UNK
  4. FLOMAX [Concomitant]
     Active Substance: TAMSULOSIN HYDROCHLORIDE
     Dosage: UNK
  5. LOPRESSOR [Concomitant]
     Active Substance: METOPROLOL TARTRATE
     Dosage: UNK
  6. LORATADINE [Concomitant]
     Active Substance: LORATADINE
     Dosage: UNK
  7. REPAGLINIDE [Concomitant]
     Active Substance: REPAGLINIDE
     Dosage: UNK
  8. TRADJENTA [Concomitant]
     Active Substance: LINAGLIPTIN
     Dosage: UNK
  9. VITAMIN D NOS [Concomitant]
     Active Substance: VITAMIN D NOS
     Dosage: UNK
  10. WARFARIN SODIUM [Concomitant]
     Active Substance: WARFARIN SODIUM
     Dosage: UNK
  11. VITAMIN C [Concomitant]
     Active Substance: ASCORBIC ACID
     Dosage: UNK
  12. CHLORTHALIDONE [Concomitant]
     Active Substance: CHLORTHALIDONE
     Dosage: UNK
  13. FERROUS SULFATE [Concomitant]
     Active Substance: FERROUS SULFATE
     Dosage: UNK
  14. TRIAMCINOLONE [Concomitant]
     Active Substance: TRIAMCINOLONE
     Dosage: UNK

REACTIONS (4)
  - Arthralgia [Unknown]
  - Injection site erythema [Unknown]
  - Injection site pruritus [Unknown]
  - Eye pruritus [Unknown]
